FAERS Safety Report 8547724-2 (Version None)
Quarter: 2012Q3

REPORT INFORMATION
  Report Type: 
  Country: None (occurrence: None)
  Receive Date: 20120727
  Receipt Date: 20120502
  Transmission Date: 20120928
  Serious: No
  Sender: FDA-Public Use
  Company Number: US-ASTRAZENECA-2012SE28300

PATIENT
  Age: 56 Year
  Sex: Female
  Weight: 76.2 kg

DRUGS (10)
  1. SEROQUEL XR [Suspect]
     Route: 048
  2. ZOLOFT [Concomitant]
  3. NEURONTIN [Concomitant]
  4. SEROQUEL XR [Suspect]
     Route: 048
  5. SEROQUEL XR [Suspect]
     Route: 048
     Dates: end: 20120401
  6. SEROQUEL XR [Suspect]
     Indication: BIPOLAR DISORDER
     Route: 048
  7. SEROQUEL XR [Suspect]
     Route: 048
  8. KLONOPIN [Concomitant]
  9. SEROQUEL XR [Suspect]
     Route: 048
  10. ZOLOFT [Concomitant]

REACTIONS (12)
  - WEIGHT INCREASED [None]
  - DEPRESSION [None]
  - ANXIETY [None]
  - ACTIVITIES OF DAILY LIVING IMPAIRED [None]
  - BLOOD GLUCOSE INCREASED [None]
  - POST-TRAUMATIC STRESS DISORDER [None]
  - WEIGHT DECREASED [None]
  - SYNCOPE [None]
  - OFF LABEL USE [None]
  - GAIT DISTURBANCE [None]
  - PANIC ATTACK [None]
  - HYPERSOMNIA [None]
